FAERS Safety Report 10203309 (Version 3)
Quarter: 2014Q2

REPORT INFORMATION
  Report Type: Report from Study
  Country: DE (occurrence: DE)
  Receive Date: 20140529
  Receipt Date: 20140617
  Transmission Date: 20141212
  Serious: Yes (Death, Hospitalization)
  Sender: FDA-Public Use
  Company Number: DE-ROCHE-1408173

PATIENT
  Age: 63 Year
  Sex: Female
  Weight: 57.3 kg

DRUGS (9)
  1. BEVACIZUMAB [Suspect]
     Indication: BREAST CANCER
     Route: 042
     Dates: start: 20131022, end: 20131022
  2. BEVACIZUMAB [Suspect]
     Route: 042
     Dates: start: 20140505, end: 20140505
  3. BEVACIZUMAB [Suspect]
     Route: 042
     Dates: start: 20140526, end: 20140526
  4. LEVOTHYROXIN [Concomitant]
     Indication: HYPOTHYROIDISM
     Route: 048
  5. LERCANIDIPINE [Concomitant]
     Route: 048
     Dates: start: 20140515
  6. PACLITAXEL [Concomitant]
     Indication: BREAST CANCER
     Dosage: ONE WEEK PAUSED
     Route: 042
     Dates: start: 20131022, end: 20131029
  7. PACLITAXEL [Concomitant]
     Dosage: ONE WEEK PAUSED
     Route: 042
     Dates: start: 20131119, end: 20131223
  8. PACLITAXEL [Concomitant]
     Dosage: 30/DEC/2013, 21/JAN/2014, 28/JAN/2014
     Route: 042
  9. PACLITAXEL [Concomitant]
     Dosage: 05/NOV/2013, 11/FEB/2014, 18/FEB/2014, 25/FEB/2014, 11/MAR/2014, 18/MAR/2014, 25/MAR/2014
     Route: 042
     Dates: end: 20140325

REACTIONS (2)
  - Dyspnoea [Fatal]
  - Faecaloma [Recovered/Resolved]
